FAERS Safety Report 23789222 (Version 1)
Quarter: 2024Q2

REPORT INFORMATION
  Report Type: Spontaneous
  Country: IT (occurrence: None)
  Receive Date: 20240426
  Receipt Date: 20240426
  Transmission Date: 20240716
  Serious: Yes (Hospitalization)
  Sender: FDA-Public Use
  Company Number: 2024A077598

PATIENT
  Age: 23 Year
  Sex: Female

DRUGS (6)
  1. QUETIAPINE [Suspect]
     Active Substance: QUETIAPINE
     Indication: Intentional self-injury
     Dosage: QUETIAPINE: 22 TABLETS OF 100 MG EACH2200.0MG UNKNOWN
     Route: 048
  2. EN [Suspect]
     Active Substance: DELORAZEPAM
     Indication: Intentional self-injury
     Dosage: EN: 6 CAPSULES OF 1 MG EACH
     Route: 048
  3. EN [Suspect]
     Active Substance: DELORAZEPAM
     Indication: Intentional self-injury
     Route: 048
  4. BREXPIPRAZOLE [Concomitant]
     Active Substance: BREXPIPRAZOLE
  5. CITALOPRAM [Concomitant]
     Active Substance: CITALOPRAM\CITALOPRAM HYDROBROMIDE
  6. TALOFEN [Concomitant]
     Active Substance: PROMAZINE HYDROCHLORIDE

REACTIONS (5)
  - Drug abuse [Recovered/Resolved]
  - Somnolence [Unknown]
  - Sopor [Recovered/Resolved]
  - Anxiety [Unknown]
  - Dysphoria [Unknown]

NARRATIVE: CASE EVENT DATE: 20231120
